FAERS Safety Report 4749074-9 (Version None)
Quarter: 2005Q3

REPORT INFORMATION
  Report Type: 
  Country: None (occurrence: None)
  Receive Date: 20050817
  Receipt Date: 20050805
  Transmission Date: 20060218
  Serious: Yes (Other)
  Sender: FDA-Public Use
  Company Number: 214579

PATIENT
  Age: 47 Year
  Sex: Female

DRUGS (10)
  1. RITUXAN [Suspect]
     Indication: NON-HODGKIN'S LYMPHOMA
     Dosage: 600 MG,  INTRAVENOUS
     Route: 042
     Dates: start: 20050503
  2. POLARAMINE (DEXCHLORPHENARAMINE MALEATE) [Concomitant]
  3. CALONAL (ACETAMINOPHEN) [Concomitant]
  4. FAMOTIDINE [Concomitant]
  5. SELBEX (TEPRENONE) [Concomitant]
  6. BIOFERMIN (LACTOBACILLUS ACIOPHILUS) [Concomitant]
  7. POTASSIUM CITRATE [Concomitant]
  8. ALLOPURINOL [Concomitant]
  9. FERROMIA (SODIUM FERROUS CITRATE) [Concomitant]
  10. INTRAVENOUS SALINE (SODIUM CHLORIDE) [Concomitant]

REACTIONS (14)
  - ABDOMINAL PAIN UPPER [None]
  - ALANINE AMINOTRANSFERASE INCREASED [None]
  - ASPARTATE AMINOTRANSFERASE INCREASED [None]
  - CHILLS [None]
  - CONDITION AGGRAVATED [None]
  - DISSEMINATED INTRAVASCULAR COAGULATION [None]
  - FATIGUE [None]
  - HAEMATOCRIT DECREASED [None]
  - HAEMOGLOBIN DECREASED [None]
  - HEADACHE [None]
  - HEPATIC FUNCTION ABNORMAL [None]
  - INFUSION RELATED REACTION [None]
  - TUMOUR LYSIS SYNDROME [None]
  - WHITE BLOOD CELL COUNT ABNORMAL [None]
